FAERS Safety Report 8816772 (Version 1)
Quarter: 2012Q4

REPORT INFORMATION
  Report Type: Spontaneous
  Country: US (occurrence: None)
  Receive Date: 20121001
  Receipt Date: 20121001
  Transmission Date: 20130627
  Serious: Yes (Other)
  Sender: FDA-Public Use
  Company Number: 2012AP002910

PATIENT
  Sex: Female

DRUGS (13)
  1. PRAVASTATIN SODIUM [Suspect]
     Indication: DRUG USE FOR UNKNOWN INDICATION
  2. OMEPRAZOLE [Concomitant]
  3. CENTRUM SILVER [Concomitant]
  4. SPIRONOLACTONE W/ HYDROCHLOROTHIAZIDE [Concomitant]
  5. OMEGA-3 FATTY ACIDS [Concomitant]
  6. SUPER B COMPLEX /01995301/ [Concomitant]
  7. BIOTIN [Concomitant]
  8. CALTRATE WITH VITAMIN D [Concomitant]
  9. PROBIOTICA [Concomitant]
  10. COLACE [Concomitant]
  11. METOPROLOL [Concomitant]
  12. BAYER ASPIRIN [Concomitant]
  13. METAMUCIL /00029101/ [Concomitant]

REACTIONS (1)
  - Loss of consciousness [None]
